FAERS Safety Report 14274001 (Version 1)
Quarter: 2017Q4

REPORT INFORMATION
  Report Type: Spontaneous
  Country: US (occurrence: US)
  Receive Date: 20171212
  Receipt Date: 20171212
  Transmission Date: 20180321
  Serious: Yes (Death, Hospitalization)
  Sender: FDA-Public Use
  Company Number: US-TEVA-2017-US-829945

PATIENT
  Age: 61 Year
  Sex: Male

DRUGS (6)
  1. AMIODARONE [Suspect]
     Active Substance: AMIODARONE
     Dosage: BOLUS 150 MG LOADING DOSE; FOLLOWED BY INFUSION AT 1MG/MINUTE
     Route: 040
  2. AMIODARONE [Suspect]
     Active Substance: AMIODARONE
     Dosage: INFUSION AT 1MG/MINUTE
     Route: 041
  3. ASPIRIN. [Suspect]
     Active Substance: ASPIRIN
     Indication: ACUTE MYOCARDIAL INFARCTION
     Dosage: 325 MG
     Route: 050
  4. EPTIFIBATIDE. [Suspect]
     Active Substance: EPTIFIBATIDE
     Dosage: 180 MCG/KG
     Route: 040
  5. BIVALIRUDIN. [Suspect]
     Active Substance: BIVALIRUDIN
     Dosage: BOLUS 0.75 MG/KG; FOLLOWED BY INFUSION AT 1.75 MG/KG/HOUR
     Route: 040
  6. BIVALIRUDIN. [Suspect]
     Active Substance: BIVALIRUDIN
     Dosage: 1.75 MG/KG/HOUR
     Route: 041

REACTIONS (1)
  - Pulmonary alveolar haemorrhage [Fatal]
